FAERS Safety Report 8360504-6 (Version None)
Quarter: 2012Q1

REPORT INFORMATION
  Report Type: 
  Country: None (occurrence: None)
  Receive Date: 20120315
  Receipt Date: 20110315
  Transmission Date: 20120608
  Serious: Yes (Other)
  Sender: FDA-Public Use
  Company Number: PHHY2011US02344

PATIENT
  Age: 43 Year
  Sex: Female

DRUGS (7)
  1. ATIVAN [Concomitant]
  2. FLECTOR [Concomitant]
  3. NAPROSYN [Concomitant]
  4. LYRICA [Concomitant]
  5. PERCOCET [Concomitant]
  6. GILENYA [Suspect]
     Indication: MULTIPLE SCLEROSIS
     Dosage: 0.5 MG, QD, ORAL
     Route: 048
     Dates: start: 20101213, end: 20110110
  7. EXCEDRIN (CAFFEINE, PARACETAMOL) [Concomitant]

REACTIONS (2)
  - DRUG INEFFECTIVE [None]
  - ASTHENIA [None]
